FAERS Safety Report 9311153 (Version 3)
Quarter: 2013Q3

REPORT INFORMATION
  Report Type: Spontaneous
  Country: US (occurrence: None)
  Receive Date: 20130308
  Receipt Date: 20130815
  Transmission Date: 20140515
  Serious: Yes (Death, Other)
  Sender: FDA-Public Use
  Company Number: ADR-2013-00175

PATIENT
  Sex: Male

DRUGS (1)
  1. LIORESAL INTRATHECAL (BACLOFEN INJECTION) 2000 MCG/ML [Suspect]
     Indication: MUSCLE SPASTICITY

REACTIONS (13)
  - Drug withdrawal syndrome [None]
  - Speech disorder [None]
  - Hypertonia [None]
  - Pruritus [None]
  - Insomnia [None]
  - Staphylococcal infection [None]
  - Pump reservoir issue [None]
  - Drug withdrawal syndrome [None]
  - Pruritus [None]
  - Staphylococcal infection [None]
  - Hypertonia [None]
  - Insomnia [None]
  - Death [None]
